FAERS Safety Report 4622358-0 (Version None)
Quarter: 2005Q1

REPORT INFORMATION
  Report Type: 
  Country: None (occurrence: None)
  Receive Date: 20050325
  Receipt Date: 20050325
  Transmission Date: 20050727
  Serious: No
  Sender: FDA-Public Use
  Company Number: None

PATIENT
  Sex: Male
  Weight: 83 kg

DRUGS (1)
  1. CISPLATIN [Suspect]
     Dosage: 100MG/M2 ON DAYS 1 AND 22
     Dates: start: 20040127

REACTIONS (5)
  - CHEST X-RAY ABNORMAL [None]
  - DYSPHAGIA [None]
  - ENTERITIS [None]
  - LUNG DISORDER [None]
  - MUCOSAL INFLAMMATION [None]
